FAERS Safety Report 24545468 (Version 2)
Quarter: 2024Q4

REPORT INFORMATION
  Report Type: Spontaneous
  Country: US (occurrence: US)
  Receive Date: 20241024
  Receipt Date: 20241107
  Transmission Date: 20250114
  Serious: No
  Sender: ROCHE
  Company Number: US-ROCHE-10000114455

PATIENT
  Sex: Male

DRUGS (1)
  1. HEMLIBRA [Suspect]
     Active Substance: EMICIZUMAB-KXWH
     Indication: Factor VIII deficiency
     Dosage: 300 MG MONTHLY X 3 MONTHS
     Route: 065
     Dates: start: 20240813

REACTIONS (3)
  - Cough [Unknown]
  - Nasal congestion [Unknown]
  - Pyrexia [Unknown]
